FAERS Safety Report 14375250 (Version 1)
Quarter: 2018Q1

REPORT INFORMATION
  Report Type: Spontaneous
  Country: US (occurrence: US)
  Receive Date: 20180110
  Receipt Date: 20180110
  Transmission Date: 20180509
  Serious: Yes (Other)
  Sender: FDA-Public Use
  Company Number: None

PATIENT
  Age: 55 Year
  Sex: Female

DRUGS (1)
  1. VARUBI [Suspect]
     Active Substance: ROLAPITANT
     Route: 041

REACTIONS (3)
  - Infusion related reaction [None]
  - Cough [None]
  - Muscle spasms [None]

NARRATIVE: CASE EVENT DATE: 20180108
